FAERS Safety Report 4800032-5 (Version None)
Quarter: 2005Q4

REPORT INFORMATION
  Report Type: 
  Country: None (occurrence: None)
  Receive Date: 20051017
  Receipt Date: 20051006
  Transmission Date: 20060501
  Serious: Yes (Other)
  Sender: FDA-Public Use
  Company Number: US-JNJFOC-20051001399

PATIENT
  Sex: Female

DRUGS (21)
  1. INFLIXIMAB [Suspect]
     Indication: RHEUMATOID ARTHRITIS
     Route: 042
  2. ARAVA [Concomitant]
  3. EVISTA [Concomitant]
  4. CELEBREX [Concomitant]
  5. FOLIC ACID [Concomitant]
  6. NEURONTIN [Concomitant]
  7. DIOVAN [Concomitant]
  8. PRAVACHOL [Concomitant]
  9. DOXAZOSIN [Concomitant]
  10. PRILOSEC [Concomitant]
  11. ASPIRIN [Concomitant]
  12. FOSAMAX [Concomitant]
  13. OSCAL [Concomitant]
  14. MULTI-VITAMIN [Concomitant]
  15. MULTI-VITAMIN [Concomitant]
  16. MULTI-VITAMIN [Concomitant]
  17. MULTI-VITAMIN [Concomitant]
  18. MULTI-VITAMIN [Concomitant]
  19. MULTI-VITAMIN [Concomitant]
  20. MULTI-VITAMIN [Concomitant]
  21. MULTI-VITAMIN [Concomitant]

REACTIONS (1)
  - BREAST CANCER [None]
